FAERS Safety Report 5897681-2 (Version None)
Quarter: 2008Q3

REPORT INFORMATION
  Report Type: 
  Country: None (occurrence: None)
  Receive Date: 20080908
  Receipt Date: 20070907
  Transmission Date: 20090109
  Serious: Yes (Other)
  Sender: FDA-Public Use
  Company Number: 07-035

PATIENT
  Age: 50 Year
  Sex: Female

DRUGS (5)
  1. PREDNISONE TAB [Suspect]
  2. TYLENOL (CAPLET) [Concomitant]
  3. PEGASYS [Concomitant]
  4. ADVIL [Concomitant]
  5. RIBAVIRIN [Concomitant]

REACTIONS (1)
  - DRUG INEFFECTIVE [None]
